FAERS Safety Report 24329310 (Version 1)
Quarter: 2024Q3

REPORT INFORMATION
  Report Type: Spontaneous
  Country: GB (occurrence: GB)
  Receive Date: 20240917
  Receipt Date: 20240917
  Transmission Date: 20241017
  Serious: Yes (Other)
  Sender: TEVA
  Company Number: GB-MHRA-EMIS-4466-98ea284f-a476-4633-98b6-f958c5430d73

PATIENT
  Age: 84 Year
  Sex: Female
  Weight: 55 kg

DRUGS (2)
  1. LOSARTAN [Suspect]
     Active Substance: LOSARTAN\LOSARTAN POTASSIUM
     Dosage: ONE TO BE TAKEN EACH DAY
     Route: 065
     Dates: start: 20240816
  2. LANSOPRAZOLE [Concomitant]
     Active Substance: LANSOPRAZOLE
     Dosage: ONE TO BE TAKEN TWICE A DAY
     Dates: start: 20240816

REACTIONS (2)
  - Seizure [Unknown]
  - Tremor [Unknown]
